FAERS Safety Report 17044735 (Version 1)
Quarter: 2019Q4

REPORT INFORMATION
  Report Type: Spontaneous
  Country: US (occurrence: US)
  Receive Date: 20191018
  Receipt Date: 20191018
  Transmission Date: 20200122
  Serious: No
  Sender: FDA-Public Use
  Company Number: None

PATIENT
  Age: 58 Year
  Sex: Female

DRUGS (1)
  1. LARYNG-O-JET [Suspect]
     Active Substance: LIDOCAINE HYDROCHLORIDE

REACTIONS (3)
  - Complication of device insertion [None]
  - Wrong technique in device usage process [None]
  - Cough [None]

NARRATIVE: CASE EVENT DATE: 201909
